FAERS Safety Report 14018242 (Version 2)
Quarter: 2017Q4

REPORT INFORMATION
  Report Type: Spontaneous
  Country: JP (occurrence: JP)
  Receive Date: 20170928
  Receipt Date: 20171228
  Transmission Date: 20180321
  Serious: Yes (Death, Hospitalization)
  Sender: FDA-Public Use
  Company Number: JP-ACTELION-A-CH2017-158922

PATIENT
  Age: 67 Year
  Sex: Male

DRUGS (19)
  1. XARELTO [Concomitant]
     Active Substance: RIVAROXABAN
  2. VERAPAMIL [Concomitant]
     Active Substance: VERAPAMIL HYDROCHLORIDE
  3. ROZEREM [Concomitant]
     Active Substance: RAMELTEON
  4. GAMZANOL [Concomitant]
  5. JUVELA [Concomitant]
     Active Substance: .ALPHA.-TOCOPHEROL\RETINOL
  6. ALBUMIN TANNATE [Concomitant]
     Active Substance: ALBUMIN BOVINE\TANNIC ACID
  7. LEVOFLOXACIN. [Concomitant]
     Active Substance: LEVOFLOXACIN
  8. ACETAMINOPHEN. [Concomitant]
     Active Substance: ACETAMINOPHEN
  9. OXYGEN. [Concomitant]
     Active Substance: OXYGEN
  10. OPSUMIT [Suspect]
     Active Substance: MACITENTAN
     Indication: PULMONARY ARTERIAL HYPERTENSION
     Dosage: 10 MG, QD
     Route: 048
     Dates: start: 20170815, end: 20170823
  11. PREDONINE [Concomitant]
     Active Substance: PREDNISOLONE
  12. MIYA-BM [Concomitant]
     Active Substance: CLOSTRIDIUM BUTYRICUM SPORES STRAIN M-55
  13. LANSOPRAZOLE. [Concomitant]
     Active Substance: LANSOPRAZOLE
  14. FUROSEMIDE. [Concomitant]
     Active Substance: FUROSEMIDE
  15. YOKUKANSAN [Concomitant]
     Active Substance: HERBALS
  16. MEROPENEM. [Concomitant]
     Active Substance: MEROPENEM
  17. OPSUMIT [Suspect]
     Active Substance: MACITENTAN
     Dosage: 5 MG, QD
     Route: 048
     Dates: start: 20170808, end: 20170814
  18. BISOPROLOL [Concomitant]
     Active Substance: BISOPROLOL
  19. SPIRONOLACTONE. [Concomitant]
     Active Substance: SPIRONOLACTONE

REACTIONS (5)
  - Oxygen saturation decreased [Fatal]
  - Respiratory failure [Fatal]
  - Concomitant disease aggravated [Not Recovered/Not Resolved]
  - Oedema [Recovering/Resolving]
  - Interstitial lung disease [Fatal]

NARRATIVE: CASE EVENT DATE: 201708
